FAERS Safety Report 5867145-0 (Version None)
Quarter: 2008Q3

REPORT INFORMATION
  Report Type: 
  Country: None (occurrence: None)
  Receive Date: 20080829
  Receipt Date: 20080829
  Transmission Date: 20090109
  Serious: Yes (Death, Hospitalization)
  Sender: FDA-Public Use
  Company Number: None

PATIENT
  Age: 42 Year
  Sex: Female
  Weight: 46.7205 kg

DRUGS (19)
  1. AVASTIN [Suspect]
     Indication: NON-SMALL CELL LUNG CANCER
     Dosage: 15 MG/KG IV D-14 + Q21D
     Route: 042
     Dates: start: 20080605
  2. ABRAXANE [Suspect]
     Indication: NON-SMALL CELL LUNG CANCER
     Dosage: 100MG/M2 IV D1, 8 AND 15
     Route: 042
     Dates: start: 20080630, end: 20080804
  3. CARBOPLATIN [Suspect]
     Indication: NON-SMALL CELL LUNG CANCER
     Dosage: AUC 6 Q 21 DAYS
     Dates: start: 20080630, end: 20080721
  4. ALBUTERAL [Concomitant]
  5. ATIVAN [Concomitant]
  6. ATOVAQUONE [Concomitant]
  7. CLINDAMYCIN HCL [Concomitant]
  8. CLONAZEPAM [Concomitant]
  9. COMPAZINE [Concomitant]
  10. LASIX [Concomitant]
  11. OMEPRAZOLE [Concomitant]
  12. OXYCODONE HCL [Concomitant]
  13. OXYCONTIN [Concomitant]
  14. PREDNISONE [Concomitant]
  15. SEROQUEL [Concomitant]
  16. TESSALON [Concomitant]
  17. TRILISATE [Concomitant]
  18. ZOFRAN [Concomitant]
  19. ZYPREXA [Concomitant]

REACTIONS (4)
  - ALANINE AMINOTRANSFERASE INCREASED [None]
  - ASPARTATE AMINOTRANSFERASE INCREASED [None]
  - GENERAL PHYSICAL HEALTH DETERIORATION [None]
  - RESPIRATORY DISTRESS [None]
